FAERS Safety Report 7244021-2 (Version None)
Quarter: 2011Q1

REPORT INFORMATION
  Report Type: 
  Country: None (occurrence: None)
  Receive Date: 20110125
  Receipt Date: 20110118
  Transmission Date: 20110831
  Serious: Yes (Hospitalization)
  Sender: FDA-Public Use
  Company Number: JP-MERCK-1009USA01252

PATIENT
  Age: 72 Year
  Sex: Female

DRUGS (7)
  1. JUVELA N [Concomitant]
     Indication: PERIPHERAL CIRCULATORY FAILURE
     Route: 065
     Dates: start: 20090613
  2. ISALON [Concomitant]
     Indication: GASTRITIS
     Route: 065
     Dates: start: 20090613, end: 20100906
  3. TOUGHMAC E [Concomitant]
     Indication: GASTRITIS
     Route: 065
     Dates: start: 20090613, end: 20100906
  4. ALINAMIN F (FURSULTIAMINE HYDROCHLORIDE) [Concomitant]
     Indication: BACK PAIN
     Route: 065
     Dates: start: 20090613
  5. ZETIA [Suspect]
     Indication: HYPERLIPIDAEMIA
     Route: 048
     Dates: start: 20100827, end: 20100904
  6. PROMAC [Concomitant]
     Indication: GASTRITIS
     Route: 065
     Dates: start: 20090613, end: 20100906
  7. NAUZELIN [Concomitant]
     Indication: GASTRITIS
     Route: 065
     Dates: start: 20090613

REACTIONS (4)
  - DEHYDRATION [None]
  - NAUSEA [None]
  - VOMITING [None]
  - ALTERED STATE OF CONSCIOUSNESS [None]
